FAERS Safety Report 6807211-6 (Version None)
Quarter: 2010Q2

REPORT INFORMATION
  Report Type: 
  Country: None (occurrence: None)
  Receive Date: 20100629
  Receipt Date: 20080818
  Transmission Date: 20101027
  Serious: No
  Sender: FDA-Public Use
  Company Number: US-PFIZER INC-2008070408

PATIENT
  Sex: Male
  Weight: 95.454 kg

DRUGS (9)
  1. VIAGRA [Suspect]
     Indication: ERECTILE DYSFUNCTION
  2. COPAXONE [Concomitant]
  3. PENTOXIFYLLINE [Concomitant]
  4. METOPROLOL [Concomitant]
  5. KEPPRA [Concomitant]
  6. VESICARE [Concomitant]
  7. GABAPENTIN [Concomitant]
     Indication: CARDIOVASCULAR DISORDER
  8. WELLBUTRIN [Concomitant]
  9. LIPITOR [Concomitant]

REACTIONS (1)
  - DRUG INEFFECTIVE [None]
